FAERS Safety Report 24206643 (Version 1)
Quarter: 2024Q3

REPORT INFORMATION
  Report Type: Spontaneous
  Country: GB (occurrence: DE)
  Receive Date: 20240813
  Receipt Date: 20240813
  Transmission Date: 20241017
  Serious: No
  Sender: JAZZ
  Company Number: GB-JAZZ PHARMACEUTICALS-2023-GB-016989

PATIENT
  Age: 52 Year
  Sex: Male
  Weight: 97.2 kg

DRUGS (2)
  1. VYXEOS [Suspect]
     Active Substance: CYTARABINE\DAUNORUBICIN
     Indication: Acute myeloid leukaemia
     Dosage: 98.12 MG/223 MG, 3 DOSES
     Route: 042
     Dates: start: 20230802, end: 20230806
  2. VYXEOS [Suspect]
     Active Substance: CYTARABINE\DAUNORUBICIN
     Indication: Myelodysplastic syndrome

REACTIONS (1)
  - Wrong technique in product usage process [Unknown]
